FAERS Safety Report 9825092 (Version 1)
Quarter: 2013Q4

REPORT INFORMATION
  Report Type: Spontaneous
  Country: US (occurrence: None)
  Receive Date: 20131028
  Receipt Date: 20131028
  Transmission Date: 20140711
  Serious: No
  Sender: FDA-Public Use
  Company Number: 2013US002295

PATIENT
  Age: 42 Year
  Sex: Female
  Weight: 73 kg

DRUGS (3)
  1. ICLUSIG [Suspect]
     Indication: CHRONIC MYELOID LEUKAEMIA
  2. CLA SUPPLEMENT (LINOLEIC ACID) [Concomitant]
  3. MULTIVITAMIN (VITAMINS NOS) [Concomitant]

REACTIONS (1)
  - Rash [None]
